FAERS Safety Report 6593895-7 (Version None)
Quarter: 2010Q1

REPORT INFORMATION
  Report Type: 
  Country: None (occurrence: None)
  Receive Date: 20100222
  Receipt Date: 20100209
  Transmission Date: 20100710
  Serious: Yes (Other)
  Sender: FDA-Public Use
  Company Number: PHHY2010NL07053

PATIENT
  Sex: Female

DRUGS (1)
  1. ZOMETA [Suspect]
     Dosage: 4 MG/ 5ML
     Route: 042
     Dates: start: 20090403, end: 20100208

REACTIONS (3)
  - FATIGUE [None]
  - NAUSEA [None]
  - PYELONEPHRITIS [None]
